FAERS Safety Report 19181107 (Version 1)
Quarter: 2021Q2

REPORT INFORMATION
  Report Type: Spontaneous
  Country: US (occurrence: US)
  Receive Date: 20210426
  Receipt Date: 20210426
  Transmission Date: 20210717
  Serious: Yes (Other)
  Sender: FDA-Public Use
  Company Number: US-TEVA-2021-US-1905313

PATIENT

DRUGS (1)
  1. COPAXONE [Suspect]
     Active Substance: GLATIRAMER ACETATE
     Dosage: FORM STRENGTH UNKNOWN, TAKEN FOR 15 YEARS
     Route: 065

REACTIONS (3)
  - Injection site reaction [Unknown]
  - Injection site necrosis [Unknown]
  - Injection site hypoaesthesia [Unknown]
